FAERS Safety Report 9096545 (Version 1)
Quarter: 2013Q1

REPORT INFORMATION
  Report Type: Spontaneous
  Country: US (occurrence: US)
  Receive Date: 20130211
  Receipt Date: 20130211
  Transmission Date: 20140127
  Serious: No
  Sender: FDA-Public Use
  Company Number: US-B.I. PHARMACEUTICALS,INC./RIDGEFIELD-2013-BI-03667BP

PATIENT
  Sex: Female
  Weight: 79 kg

DRUGS (3)
  1. PRADAXA [Suspect]
     Indication: CEREBROVASCULAR ACCIDENT PROPHYLAXIS
     Route: 048
     Dates: start: 201202, end: 201301
  2. PRADAXA [Suspect]
     Indication: ATRIAL FIBRILLATION
  3. RYTHMOL [Concomitant]
     Route: 048

REACTIONS (1)
  - Weight increased [Unknown]
